FAERS Safety Report 11159919 (Version 4)
Quarter: 2015Q4

REPORT INFORMATION
  Report Type: Spontaneous
  Country: US (occurrence: US)
  Receive Date: 20150603
  Receipt Date: 20151007
  Transmission Date: 20160304
  Serious: Yes (Other)
  Sender: FDA-Public Use
  Company Number: US-INCYTE CORPORATION-2015IN002332

PATIENT
  Age: 71 Year
  Sex: Female

DRUGS (15)
  1. POTASSIUM [Concomitant]
     Active Substance: POTASSIUM
  2. CASCARA SAGRADA                    /00143201/ [Concomitant]
     Active Substance: FRANGULA PURSHIANA BARK
  3. ASPIRIN. [Concomitant]
     Active Substance: ASPIRIN
  4. JAKAFI [Suspect]
     Active Substance: RUXOLITINIB
     Indication: MYELOFIBROSIS
     Dosage: 15 MG, BID
     Route: 048
     Dates: start: 20140820
  5. DULOXETINE. [Concomitant]
     Active Substance: DULOXETINE
  6. VITAMIN E [Concomitant]
     Active Substance: .ALPHA.-TOCOPHEROL
  7. VITAMIN C [Concomitant]
     Active Substance: ASCORBIC ACID
  8. VITAMIN D3 [Concomitant]
     Active Substance: CHOLECALCIFEROL
  9. AMLODIPINE [Concomitant]
     Active Substance: AMLODIPINE BESYLATE
  10. BENZACLIN [Concomitant]
     Active Substance: BENZOYL PEROXIDE\CLINDAMYCIN PHOSPHATE
  11. LASIX [Concomitant]
     Active Substance: FUROSEMIDE
  12. MAGNESIUM [Concomitant]
     Active Substance: MAGNESIUM
  13. FISH OIL [Concomitant]
     Active Substance: FISH OIL
  14. LEVOTHYROXINE. [Concomitant]
     Active Substance: LEVOTHYROXINE
  15. RESTASIS [Concomitant]
     Active Substance: CYCLOSPORINE

REACTIONS (14)
  - Fatigue [Unknown]
  - Intervertebral disc protrusion [Not Recovered/Not Resolved]
  - Flatulence [Not Recovered/Not Resolved]
  - Dyspnoea [Not Recovered/Not Resolved]
  - Gait disturbance [Not Recovered/Not Resolved]
  - Heart rate irregular [Unknown]
  - Platelet count increased [Unknown]
  - Arthropathy [Unknown]
  - Weight increased [Not Recovered/Not Resolved]
  - Peripheral swelling [Not Recovered/Not Resolved]
  - Hypophagia [Not Recovered/Not Resolved]
  - Muscular weakness [Unknown]
  - Joint swelling [Not Recovered/Not Resolved]
  - Pain in extremity [Unknown]

NARRATIVE: CASE EVENT DATE: 20150929
